FAERS Safety Report 5803386-6 (Version None)
Quarter: 2008Q3

REPORT INFORMATION
  Report Type: 
  Country: None (occurrence: None)
  Receive Date: 20080708
  Receipt Date: 20080701
  Transmission Date: 20090109
  Serious: Yes (Other)
  Sender: FDA-Public Use
  Company Number: GB-JNJFOC-20080700212

PATIENT
  Age: 35 Year
  Sex: Female

DRUGS (8)
  1. IBUPROFEN [Suspect]
     Indication: DRUG USE FOR UNKNOWN INDICATION
  2. CYCLIZINE [Suspect]
     Indication: DRUG USE FOR UNKNOWN INDICATION
  3. ONDANSETRON [Suspect]
     Indication: DRUG USE FOR UNKNOWN INDICATION
  4. TRAMADOL HCL [Suspect]
     Indication: DRUG USE FOR UNKNOWN INDICATION
  5. CIPROFLOXACIN [Concomitant]
  6. FENTANYL [Concomitant]
  7. HEPARIN [Concomitant]
  8. ACETAMINOPHEN [Concomitant]

REACTIONS (5)
  - HYPOTENSION [None]
  - MUSCULAR WEAKNESS [None]
  - RASH ERYTHEMATOUS [None]
  - SENSATION OF HEAVINESS [None]
  - TACHYCARDIA [None]
